FAERS Safety Report 7782546-1 (Version None)
Quarter: 2011Q3

REPORT INFORMATION
  Report Type: 
  Country: None (occurrence: None)
  Receive Date: 20110927
  Receipt Date: 20110927
  Transmission Date: 20111222
  Serious: No
  Sender: FDA-Public Use
  Company Number: None

PATIENT
  Age: 63 Year
  Sex: Male
  Weight: 120.9 kg

DRUGS (4)
  1. SIMVASTATIN [Suspect]
     Indication: HYPERLIPIDAEMIA
     Dosage: 80 MG PM PO 10 EVERY DAY PO
     Route: 048
     Dates: start: 20110613, end: 20110620
  2. SIMVASTATIN [Suspect]
     Indication: HYPERTENSION
     Dosage: 80 MG PM PO 10 EVERY DAY PO
     Route: 048
     Dates: start: 20110613, end: 20110620
  3. SIMVASTATIN [Suspect]
     Indication: HYPERLIPIDAEMIA
     Dosage: 80 MG PM PO 10 EVERY DAY PO
     Route: 048
     Dates: start: 20081009
  4. SIMVASTATIN [Suspect]
     Indication: HYPERTENSION
     Dosage: 80 MG PM PO 10 EVERY DAY PO
     Route: 048
     Dates: start: 20081009

REACTIONS (6)
  - ASPARTATE AMINOTRANSFERASE INCREASED [None]
  - TREATMENT NONCOMPLIANCE [None]
  - BLOOD CREATINE PHOSPHOKINASE INCREASED [None]
  - BLOOD CREATININE INCREASED [None]
  - MYALGIA [None]
  - ALANINE AMINOTRANSFERASE INCREASED [None]
